FAERS Safety Report 17641374 (Version 4)
Quarter: 2020Q2

REPORT INFORMATION
  Report Type: Report from Study
  Country: CA (occurrence: CA)
  Receive Date: 20200407
  Receipt Date: 20200423
  Transmission Date: 20200713
  Serious: Yes (Death)
  Sender: FDA-Public Use
  Company Number: CA-EISAI MEDICAL RESEARCH-EC-2020-072895

PATIENT
  Age: 63 Year
  Sex: Male
  Weight: 73.7 kg

DRUGS (27)
  1. PEMBROLIZUMAB. [Suspect]
     Active Substance: PEMBROLIZUMAB
     Route: 041
     Dates: start: 20200304, end: 20200304
  2. BIOTENE NOS [Concomitant]
     Active Substance: CETYLPYRIDINIUM CHLORIDE OR SODIUM FLUORIDE OR SODIUM MONOFLUOROPHOSPHATE OR GLUCOSE OXIDASE\LACTOFERRIN\LACTOPEROXIDASE BOVINE\LYSOZYME
     Dates: start: 20200122
  3. LAX A DAY [Concomitant]
     Dates: start: 20200205
  4. PEMETREXED. [Suspect]
     Active Substance: PEMETREXED
     Route: 041
     Dates: start: 20200212, end: 20200212
  5. CYANOCOBALAMIN. [Concomitant]
     Active Substance: CYANOCOBALAMIN
  6. DILAUDID [Concomitant]
     Active Substance: HYDROMORPHONE HYDROCHLORIDE
     Dates: start: 20200220
  7. ASPIRIN. [Concomitant]
     Active Substance: ASPIRIN
     Dates: start: 20200107
  8. PAROXETINE. [Concomitant]
     Active Substance: PAROXETINE
     Dates: start: 200901
  9. ACETAMINOPHEN. [Concomitant]
     Active Substance: ACETAMINOPHEN
     Dates: start: 20200120
  10. PREDNISONE. [Concomitant]
     Active Substance: PREDNISONE
     Dates: start: 20200311
  11. SODIUM PHOSPHATE, DIBASIC [Concomitant]
     Active Substance: SODIUM PHOSPHATE, DIBASIC
     Dates: start: 20200317
  12. LENVATINIB [Suspect]
     Active Substance: LENVATINIB
     Indication: NON-SMALL CELL LUNG CANCER METASTATIC
     Route: 048
     Dates: start: 20200122, end: 20200323
  13. PEMBROLIZUMAB. [Suspect]
     Active Substance: PEMBROLIZUMAB
     Route: 041
     Dates: start: 20200212, end: 20200212
  14. PEMBROLIZUMAB. [Suspect]
     Active Substance: PEMBROLIZUMAB
     Indication: NON-SMALL CELL LUNG CANCER METASTATIC
     Route: 041
     Dates: start: 20200122, end: 20200122
  15. CARBOPLATIN. [Suspect]
     Active Substance: CARBOPLATIN
     Indication: NON-SMALL CELL LUNG CANCER METASTATIC
     Dosage: AREA UNDER CURVE (AUC) 5 MG/ML/MIN, Q3W FOR 4 CYCLES
     Route: 041
     Dates: start: 20200122, end: 20200122
  16. CARBOPLATIN. [Suspect]
     Active Substance: CARBOPLATIN
     Dosage: AREA UNDER CURVE (AUC) 5 MG/ML/MIN, Q3W FOR 4 CYCLES
     Route: 041
     Dates: start: 20200212, end: 20200212
  17. FOLIC ACID. [Concomitant]
     Active Substance: FOLIC ACID
  18. SENOKOT [Concomitant]
     Active Substance: SENNOSIDES
     Dates: start: 20200205
  19. FERROUS SULFATE. [Concomitant]
     Active Substance: FERROUS SULFATE
     Dates: start: 201901
  20. PEMETREXED. [Suspect]
     Active Substance: PEMETREXED
     Indication: NON-SMALL CELL LUNG CANCER METASTATIC
     Route: 041
     Dates: start: 20200122, end: 20200122
  21. IRBESARTAN. [Concomitant]
     Active Substance: IRBESARTAN
     Dates: start: 199901
  22. PANTOPRAZOLE [Concomitant]
     Active Substance: PANTOPRAZOLE
     Dates: start: 201901
  23. AMLODIPINE [Concomitant]
     Active Substance: AMLODIPINE BESYLATE
     Dates: start: 20200227
  24. HYDROMORPH CONTIN [Concomitant]
     Active Substance: HYDROMORPHONE
     Dates: start: 20200328
  25. CARBOPLATIN. [Suspect]
     Active Substance: CARBOPLATIN
     Dosage: AREA UNDER CURVE (AUC) 5 MG/ML/MIN, Q3W FOR 4 CYCLES
     Route: 041
     Dates: start: 20200304, end: 20200304
  26. PEMETREXED. [Suspect]
     Active Substance: PEMETREXED
     Route: 041
     Dates: start: 20200304, end: 20200304
  27. PREDNISONE. [Concomitant]
     Active Substance: PREDNISONE
     Dates: start: 20200328

REACTIONS (1)
  - Dyspnoea [Fatal]

NARRATIVE: CASE EVENT DATE: 20200216
